FAERS Safety Report 17129962 (Version 1)
Quarter: 2019Q4

REPORT INFORMATION
  Report Type: Spontaneous
  Country: FR (occurrence: FR)
  Receive Date: 20191209
  Receipt Date: 20191209
  Transmission Date: 20200122
  Serious: Yes (Hospitalization)
  Sender: FDA-Public Use
  Company Number: FR-GLAXOSMITHKLINE-FR2019219707

PATIENT
  Age: 49 Year
  Sex: Female
  Weight: 71 kg

DRUGS (1)
  1. SCOPODERM TTS [Suspect]
     Active Substance: SCOPOLAMINE
     Indication: OCCUPATIONAL EXPOSURE TO PRODUCT
     Dosage: UNK
     Route: 061
     Dates: start: 20190103, end: 20190103

REACTIONS (2)
  - Mydriasis [Recovered/Resolved]
  - Headache [Recovered/Resolved]

NARRATIVE: CASE EVENT DATE: 20190103
